FAERS Safety Report 20244665 (Version 1)
Quarter: 2021Q4

REPORT INFORMATION
  Report Type: Spontaneous
  Country: US (occurrence: US)
  Receive Date: 20211229
  Receipt Date: 20211229
  Transmission Date: 20220304
  Serious: No
  Sender: FDA-Public Use
  Company Number: US-CELLTRION INC.-2021US015479

PATIENT

DRUGS (1)
  1. TRUXIMA [Suspect]
     Active Substance: RITUXIMAB-ABBS
     Indication: Thrombocytopenic purpura
     Dosage: DOSE: 10 MG/ML; 843.8 MG D1, D8, D15, D22 X1.
     Dates: start: 20211111

REACTIONS (1)
  - Off label use [Unknown]
